FAERS Safety Report 4815978-1 (Version None)
Quarter: 2005Q4

REPORT INFORMATION
  Report Type: 
  Country: None (occurrence: None)
  Receive Date: 20051031
  Receipt Date: 20051011
  Transmission Date: 20060501
  Serious: Yes (Disabling)
  Sender: FDA-Public Use
  Company Number: PT-ROCHE-420803

PATIENT
  Sex: Male

DRUGS (5)
  1. XELODA [Suspect]
     Dosage: AT REDUCED DOSAGE (25%).
     Route: 065
  2. ALLOPURINOL [Concomitant]
     Indication: HYPERURICAEMIA
     Route: 048
     Dates: start: 20040615
  3. FLUDEX [Concomitant]
     Route: 048
     Dates: start: 20040615
  4. HERBESSER [Concomitant]
     Route: 048
     Dates: start: 20040615
  5. CONCOR [Concomitant]
     Route: 048
     Dates: start: 20040615

REACTIONS (1)
  - VISUAL ACUITY REDUCED [None]
